FAERS Safety Report 7109140-X (Version None)
Quarter: 2010Q4

REPORT INFORMATION
  Report Type: 
  Country: None (occurrence: None)
  Receive Date: 20101117
  Receipt Date: 20101111
  Transmission Date: 20110411
  Serious: Yes (Hospitalization, Other)
  Sender: FDA-Public Use
  Company Number: CO-PFIZER INC-2010123788

PATIENT
  Age: 67 Year
  Sex: Female

DRUGS (5)
  1. IBUPROFEN [Suspect]
     Indication: BACK PAIN
     Dosage: UNK
     Route: 048
     Dates: start: 20100703, end: 20100706
  2. APIXABAN [Suspect]
     Indication: ARRHYTHMIA PROPHYLAXIS
     Dosage: 10 MG, 1X/DAY
     Route: 048
     Dates: start: 20080812, end: 20100706
  3. APIXABAN [Suspect]
     Dosage: 10 MG, 1X/DAY
     Route: 048
     Dates: start: 20100728
  4. WARFARIN SODIUM [Suspect]
     Indication: ARRHYTHMIA PROPHYLAXIS
     Dosage: 2 MG, 1X/DAY
     Route: 048
     Dates: start: 20080812, end: 20100706
  5. WARFARIN SODIUM [Suspect]
     Dosage: 2 MG, 1X/DAY
     Route: 048
     Dates: start: 20100729

REACTIONS (6)
  - DIABETES MELLITUS INADEQUATE CONTROL [None]
  - DRUG INTERACTION [None]
  - HAEMATOCRIT DECREASED [None]
  - HAEMOGLOBIN DECREASED [None]
  - SUBDURAL HAEMATOMA [None]
  - URINARY TRACT INFECTION [None]
